FAERS Safety Report 6841443-6 (Version None)
Quarter: 2010Q3

REPORT INFORMATION
  Report Type: 
  Country: None (occurrence: None)
  Receive Date: 20100714
  Receipt Date: 20070705
  Transmission Date: 20110219
  Serious: No
  Sender: FDA-Public Use
  Company Number: US-PFIZER INC-2007056791

PATIENT
  Sex: Female
  Weight: 78.2 kg

DRUGS (11)
  1. CHANTIX [Suspect]
     Indication: SMOKING CESSATION THERAPY
     Dates: start: 20070702
  2. ALBUTEROL [Concomitant]
  3. METHADONE HCL [Concomitant]
  4. PERCOCET [Concomitant]
  5. DUONEB [Concomitant]
  6. RANITIDINE [Concomitant]
  7. LITHOBID [Concomitant]
  8. CALCIPOTRIOL [Concomitant]
  9. GENERAL NUTRIENTS/MINERALS/VITAMINS [Concomitant]
  10. CALCIUM [Concomitant]
  11. MULTI-VITAMINS [Concomitant]

REACTIONS (2)
  - NAUSEA [None]
  - VOMITING [None]
